FAERS Safety Report 6836630-7 (Version None)
Quarter: 2010Q3

REPORT INFORMATION
  Report Type: 
  Country: None (occurrence: None)
  Receive Date: 20100713
  Receipt Date: 20100707
  Transmission Date: 20110219
  Serious: Yes (Death, Hospitalization, Other)
  Sender: FDA-Public Use
  Company Number: PHHY2010TR25548

PATIENT
  Sex: Male

DRUGS (3)
  1. CERTICAN [Suspect]
     Indication: LIVER TRANSPLANT
     Dosage: UNK
     Route: 048
     Dates: start: 20100409
  2. CERTICAN [Suspect]
     Indication: RENAL IMPAIRMENT
  3. CELLCEPT [Suspect]
     Indication: LIVER TRANSPLANT
     Dosage: 1500 MG/DAY
     Route: 048
     Dates: start: 20100301

REACTIONS (3)
  - LEUKOPENIA [None]
  - PANCYTOPENIA [None]
  - SEPSIS [None]
